FAERS Safety Report 19500485 (Version 1)
Quarter: 2021Q3

REPORT INFORMATION
  Report Type: Spontaneous
  Country: CN (occurrence: CN)
  Receive Date: 20210706
  Receipt Date: 20210706
  Transmission Date: 20211014
  Serious: Yes (Other)
  Sender: FDA-Public Use
  Company Number: CN-BAXTER-2021BAX018541

PATIENT
  Age: 35 Year
  Sex: Male
  Weight: 65 kg

DRUGS (7)
  1. HOLOXAN [Suspect]
     Active Substance: IFOSFAMIDE
     Indication: NEUROFIBROSARCOMA
     Dosage: FIRST CYCLE, IFOSFAMIDE 4300 MG + MESNA + 0.9% SODIUM CHLORIDE 1000 ML
     Route: 041
     Dates: start: 20210622, end: 20210624
  2. 0.9% SODIUM CHLORIDE INJECTION [Suspect]
     Active Substance: SODIUM CHLORIDE
     Indication: MEDICATION DILUTION
     Dosage: 0.9% SODIUM CHLORIDE 50 ML + MESNA 2150 MG
     Route: 041
     Dates: start: 20210622, end: 20210624
  3. MESNA. [Concomitant]
     Active Substance: MESNA
     Dosage: MESNA + 0.9% SODIUM CHLORIDE 1000 ML + IFOSFAMIDE 4300 MG
     Route: 041
     Dates: start: 20210622, end: 20210624
  4. 0.9% SODIUM CHLORIDE INJECTION [Suspect]
     Active Substance: SODIUM CHLORIDE
     Indication: MEDICATION DILUTION
     Dosage: FIRST CYCLE, 0.9% SODIUM CHLORIDE 1000 ML + MESNA + IFOSFAMIDE 4300 MG
     Route: 041
     Dates: start: 20210622, end: 20210624
  5. 0.9% SODIUM CHLORIDE INJECTION [Suspect]
     Active Substance: SODIUM CHLORIDE
     Dosage: 0.9% SODIUM CHLORIDE 1000 ML+ MESNA
     Route: 041
     Dates: start: 20210623
  6. MESNA. [Concomitant]
     Active Substance: MESNA
     Indication: PROPHYLAXIS
     Dosage: MESNA 2150 MG + 0.9% SODIUM CHLORIDE 50 ML
     Route: 041
     Dates: start: 20210622, end: 20210624
  7. MESNA. [Concomitant]
     Active Substance: MESNA
     Dosage: MESNA + 0.9% SODIUM CHLORIDE 1000 ML
     Route: 041
     Dates: start: 20210623

REACTIONS (1)
  - Cystitis haemorrhagic [Recovering/Resolving]

NARRATIVE: CASE EVENT DATE: 20210623
